FAERS Safety Report 8794235 (Version 1)
Quarter: 2012Q4

REPORT INFORMATION
  Report Type: 
  Country: NL (occurrence: NL)
  Receive Date: 20120917
  Receipt Date: 20120917
  Transmission Date: 20130627
  Serious: Yes (Hospitalization, Other)
  Sender: FDA-Public Use
  Company Number: PHHY2012NL074717

PATIENT
  Age: 40 Year
  Sex: Female
  Weight: 72.8 kg

DRUGS (19)
  1. ZOMETA [Suspect]
     Indication: METASTASES TO BONE
     Dosage: 4 mg/100 ml solution for iv infusion once per 21 days
     Route: 042
  2. ZOMETA [Suspect]
     Dosage: 4 mg/100 ml solution for iv infusion once per 21 days
     Route: 042
     Dates: start: 20120627
  3. ZOMETA [Suspect]
     Dosage: 4 mg/100 ml solution for iv infusion once per 21 days
     Route: 042
     Dates: start: 20120808
  4. ZOMETA [Suspect]
     Dosage: 4 mg/100 ml solution for iv infusion once per 21 days
     Dates: start: 20120828
  5. FENTANYL [Concomitant]
     Indication: BACK PAIN
     Dosage: 12 ug/hr, one patch once per 3 days
     Route: 062
     Dates: start: 20120607
  6. FENTANYL [Concomitant]
     Dosage: 25 ug/hr, once per 3 days at least
     Route: 062
     Dates: start: 20120607
  7. CALCIUM CARBONATE W/COLECALCIFEROL [Concomitant]
     Dosage: 500 mg,/ 400IU 1 tablet per day
     Route: 048
     Dates: start: 20120607
  8. DEXAMETHASONE [Concomitant]
     Dosage: 1.5 mg, BID
     Dates: start: 20120607, end: 20120831
  9. FLUTICASONE [Concomitant]
     Dosage: 2 DF, QD
     Dates: start: 20120607
  10. ENALAPRIL [Concomitant]
     Dosage: 5 mg, QD
     Dates: start: 20120607
  11. DIAZEPAM [Concomitant]
     Dosage: 5 mg, TID
     Route: 048
     Dates: start: 20120607
  12. NADROPARINA [Concomitant]
     Dosage: 2850 IU, QD
     Route: 058
     Dates: start: 20120607, end: 20120724
  13. HYDROCHLOROTHIAZIDE [Concomitant]
     Dosage: 25 mg, QD
     Route: 048
     Dates: start: 20120607
  14. PANTOPRAZOLE [Concomitant]
     Dosage: 40 mg, QD
     Route: 048
     Dates: start: 20120607
  15. MOVICOLON [Concomitant]
     Dosage: 1 DF, TID
     Route: 048
     Dates: start: 20120607
  16. MORPHINE [Concomitant]
     Dosage: 5 mg, when needed
     Route: 048
     Dates: start: 20120607
  17. LETROZOLE [Concomitant]
     Dosage: 2.5 mg, QD
     Route: 048
     Dates: start: 20120607
  18. LORATADINE [Concomitant]
     Dosage: 10 mg, QD
     Route: 048
     Dates: start: 20120607
  19. DICLOFENAC [Concomitant]
     Dosage: 100 mg, BID
     Dates: start: 20120607, end: 20120724

REACTIONS (4)
  - Paraesthesia [Not Recovered/Not Resolved]
  - Pain in extremity [Not Recovered/Not Resolved]
  - Carpal tunnel syndrome [Unknown]
  - Nerve compression [Unknown]
